FAERS Safety Report 23442270 (Version 1)
Quarter: 2024Q1

REPORT INFORMATION
  Report Type: Spontaneous
  Country: CN (occurrence: None)
  Receive Date: 20240125
  Receipt Date: 20240125
  Transmission Date: 20240410
  Serious: Yes (Hospitalization)
  Sender: FDA-Public Use
  Company Number: 2024A000218

PATIENT
  Age: 82 Year
  Sex: Male

DRUGS (3)
  1. SYMBICORT [Suspect]
     Active Substance: BUDESONIDE\FORMOTEROL FUMARATE DIHYDRATE
     Indication: Asthma
     Dosage: UNKNOWN DOSAGE; DAILY
     Route: 055
  2. SYMBICORT [Suspect]
     Active Substance: BUDESONIDE\FORMOTEROL FUMARATE DIHYDRATE
     Indication: Dyspnoea
     Dosage: UNKNOWN DOSAGE; DAILY
     Route: 055
  3. SYMBICORT [Suspect]
     Active Substance: BUDESONIDE\FORMOTEROL FUMARATE DIHYDRATE
     Indication: Dyspnoea
     Dosage: UNKNOWN DOSAGE; DAILY
     Route: 055

REACTIONS (4)
  - Malaise [Recovered/Resolved]
  - Abdominal pain [Recovered/Resolved]
  - Hypoacusis [Unknown]
  - Wrong technique in device usage process [Unknown]
